FAERS Safety Report 12013836 (Version 2)
Quarter: 2016Q1

REPORT INFORMATION
  Report Type: Report from Study
  Country: US (occurrence: US)
  Receive Date: 20160205
  Receipt Date: 20160218
  Transmission Date: 20160526
  Serious: Yes (Other)
  Sender: FDA-Public Use
  Company Number: US-AMGEN-USASL2016011531

PATIENT
  Age: 38 Year
  Sex: Female

DRUGS (2)
  1. ENBREL [Suspect]
     Active Substance: ETANERCEPT
     Indication: PSORIATIC ARTHROPATHY
     Dosage: 50 MG, QWK
     Route: 065
     Dates: start: 20150507
  2. ENBREL [Suspect]
     Active Substance: ETANERCEPT
     Dosage: 50 MG, UNK
     Route: 065
     Dates: start: 20160127

REACTIONS (8)
  - Bronchitis [Unknown]
  - Toothache [Unknown]
  - Injection site bruising [Unknown]
  - Hepatitis C [Unknown]
  - Increased tendency to bruise [Unknown]
  - Injection site pain [Unknown]
  - Injection site mass [Unknown]
  - Tooth infection [Unknown]

NARRATIVE: CASE EVENT DATE: 201601
